FAERS Safety Report 23921071 (Version 1)
Quarter: 2024Q2

REPORT INFORMATION
  Report Type: Spontaneous
  Country: PY (occurrence: PY)
  Receive Date: 20240530
  Receipt Date: 20240530
  Transmission Date: 20240715
  Serious: Yes (Hospitalization)
  Sender: FDA-Public Use
  Company Number: PY-BIOMARINAP-PY-2024-158145

PATIENT

DRUGS (3)
  1. BRINEURA [Suspect]
     Active Substance: CERLIPONASE ALFA
     Indication: Product used for unknown indication
     Dosage: 300 MILLIGRAM, QOW
     Route: 020
  2. HYDROCORTISONE [Concomitant]
     Active Substance: HYDROCORTISONE
     Indication: Product used for unknown indication
  3. CHLORPHENIRAMINE [Concomitant]
     Active Substance: CHLORPHENIRAMINE
     Indication: Product used for unknown indication

REACTIONS (1)
  - Urticaria [Recovered/Resolved]
